FAERS Safety Report 8883837 (Version 1)
Quarter: 2012Q4

REPORT INFORMATION
  Report Type: 
  Country: US (occurrence: US)
  Receive Date: 20121102
  Receipt Date: 20121102
  Transmission Date: 20130627
  Serious: No
  Sender: FDA-Public Use
  Company Number: US-ASTRAZENECA-2012SE08350

PATIENT
  Age: 51 Year
  Sex: Female

DRUGS (2)
  1. CRESTOR [Suspect]
     Route: 048
  2. LIPITOR [Concomitant]

REACTIONS (5)
  - Heart rate increased [Unknown]
  - Animal scratch [Unknown]
  - Wound infection [Unknown]
  - Insomnia [Unknown]
  - Drug dose omission [Unknown]
